FAERS Safety Report 7735263-8 (Version None)
Quarter: 2011Q3

REPORT INFORMATION
  Report Type: 
  Country: None (occurrence: None)
  Receive Date: 20110907
  Receipt Date: 20110502
  Transmission Date: 20111222
  Serious: No
  Sender: FDA-Public Use
  Company Number: US-BAYER-2011-037601

PATIENT
  Age: 2 Year
  Sex: Male

DRUGS (1)
  1. CIPROFLOXACIN [Suspect]
     Dosage: 4 ML, BID
     Route: 048
     Dates: start: 20110401

REACTIONS (2)
  - DRUG INEFFECTIVE [None]
  - LIQUID PRODUCT PHYSICAL ISSUE [None]
